FAERS Safety Report 8335021-X (Version None)
Quarter: 2012Q2

REPORT INFORMATION
  Report Type: 
  Country: None (occurrence: None)
  Receive Date: 20120503
  Receipt Date: 20120423
  Transmission Date: 20120825
  Serious: Yes (Hospitalization)
  Sender: FDA-Public Use
  Company Number: BE-ABBOTT-12P-013-0928251-08

PATIENT
  Sex: Female

DRUGS (12)
  1. ACETAMINOPHEN [Concomitant]
     Indication: ABDOMINAL PAIN
     Dates: start: 20090705, end: 20090705
  2. PANTOPRAZOLE [Concomitant]
     Indication: ABDOMINAL PAIN UPPER
     Dates: start: 20091201
  3. HUMIRA [Suspect]
     Indication: CROHN'S DISEASE
     Route: 058
     Dates: end: 20090701
  4. PANTOPRAZOLE [Concomitant]
     Dates: start: 20120206, end: 20120218
  5. EFFEXOR [Concomitant]
     Dates: start: 20090801
  6. CETIRIZINE [Concomitant]
     Indication: HYPERSENSITIVITY
     Dates: start: 20110101
  7. EFFEXOR [Concomitant]
     Indication: INSOMNIA
     Dates: start: 20090703, end: 20090708
  8. ACETAMINOPHEN [Concomitant]
     Indication: PAIN
     Dates: start: 20090801
  9. REMICADE [Concomitant]
     Indication: CROHN'S DISEASE
     Dates: start: 20110817
  10. ZOLPIDEM [Concomitant]
     Indication: INSOMNIA
     Dates: start: 20110101
  11. LORAZEPAM [Concomitant]
     Indication: INSOMNIA
     Dates: start: 20110101
  12. LORAZEPAM [Concomitant]
     Dates: start: 20120129, end: 20120129

REACTIONS (1)
  - FAECAL INCONTINENCE [None]
